FAERS Safety Report 15673080 (Version 9)
Quarter: 2019Q3

REPORT INFORMATION
  Report Type: Spontaneous
  Country: CA (occurrence: CA)
  Receive Date: 20181129
  Receipt Date: 20190829
  Transmission Date: 20191004
  Serious: Yes (Hospitalization, Other)
  Sender: FDA-Public Use
  Company Number: CA-PFIZER INC-2018330178

PATIENT
  Age: 61 Year
  Sex: Female

DRUGS (41)
  1. TYLENOL WITH CODEINE [Concomitant]
     Active Substance: ACETAMINOPHEN\CODEINE PHOSPHATE
     Dosage: 30 MG 1 TO 2 TABLETS Q (EVERY) 4-6H AS NEEDED
     Route: 065
  2. PANTOLOC [PANTOPRAZOLE] [Concomitant]
     Active Substance: PANTOPRAZOLE SODIUM
     Dosage: 40 MG, 2X/DAY
     Route: 065
  3. HYDROMORPH [Concomitant]
     Active Substance: HYDROMORPHONE
     Dosage: 24 MG, TOTAL DIVIDED (12 HOURS)
  4. FOLIC ACID. [Concomitant]
     Active Substance: FOLIC ACID
     Dosage: UNK
  5. XELJANZ [Suspect]
     Active Substance: TOFACITINIB CITRATE
     Dosage: 5 MG, 1X/DAY
     Route: 048
     Dates: start: 201808, end: 2018
  6. METRONIDAZOLE. [Concomitant]
     Active Substance: METRONIDAZOLE
     Dosage: UNK
     Route: 065
     Dates: start: 20170810, end: 20170820
  7. ONBREZ [Concomitant]
     Active Substance: INDACATEROL
     Dosage: 75 UG, DAILY
     Route: 065
  8. SALBUTAMOL [Concomitant]
     Active Substance: ALBUTEROL
     Dosage: UNK, AS NEEDED
     Route: 065
  9. JANUVIA [Concomitant]
     Active Substance: SITAGLIPTIN PHOSPHATE
     Dosage: 100 MG, DAILY
     Route: 065
  10. HYDROMORPHONE [Concomitant]
     Active Substance: HYDROMORPHONE
     Dosage: 9 MG, TWICE DAILY
  11. NEBUSAL [Concomitant]
     Active Substance: SODIUM CHLORIDE
     Dosage: UNK, DAILY ()1 TO 2 MASKINGS
     Route: 065
  12. DEFLAZACORT [Concomitant]
     Active Substance: DEFLAZACORT
     Dosage: 18 MG, DAILY
  13. METHOTREXATE. [Concomitant]
     Active Substance: METHOTREXATE
     Dosage: 7.5 MG, DAILY
  14. ONBREZ [Concomitant]
     Active Substance: INDACATEROL
     Dosage: 75 UG, UNK
     Route: 065
  15. HYDROMORPH [Concomitant]
     Active Substance: HYDROMORPHONE
     Dosage: 9 MG, 2X/DAY
  16. VITAMIN D [COLECALCIFEROL] [Concomitant]
     Active Substance: CHOLECALCIFEROL
     Dosage: 1000 IU, DAILY
     Route: 065
  17. ASPIRIN [ACETYLSALICYLIC ACID] [Concomitant]
     Active Substance: ASPIRIN
     Dosage: 81 MG, DAILY
     Route: 065
  18. XELJANZ [Suspect]
     Active Substance: TOFACITINIB CITRATE
     Dosage: 5 MG, EVERY 2 DAYS
     Route: 048
     Dates: start: 20190205, end: 20190222
  19. METHOTREXATE. [Concomitant]
     Active Substance: METHOTREXATE
     Dosage: 75 MG, DAILY
     Route: 048
  20. METRONIDAZOLE. [Concomitant]
     Active Substance: METRONIDAZOLE
     Dosage: UNK
     Route: 065
     Dates: start: 201708, end: 20170820
  21. COVERSYL [PERINDOPRIL ARGININE] [Concomitant]
     Active Substance: PERINDOPRIL ARGININE
     Dosage: 4 MG, DAILY
     Route: 065
  22. PREGABALIN. [Concomitant]
     Active Substance: PREGABALIN
     Dosage: 50 MG, 1X/DAY
     Route: 065
  23. METOPROLOL. [Concomitant]
     Active Substance: METOPROLOL
     Dosage: 12.5 MG, TWICE DAILY
     Route: 065
  24. RISEDRONATE [Concomitant]
     Active Substance: RISEDRONATE SODIUM
     Dosage: 150 MG, MONTHLY
     Route: 065
  25. CRESTOR [Concomitant]
     Active Substance: ROSUVASTATIN CALCIUM
     Dosage: 40 MG, DAILY
     Route: 065
  26. ACIDOPHILUS PROBIOTIC [Concomitant]
     Dosage: 1 DF, DAILY
     Route: 065
  27. DEFLAZACORT [Concomitant]
     Active Substance: DEFLAZACORT
     Dosage: 6 MG, 3X/DAY
     Route: 065
  28. XELJANZ [Suspect]
     Active Substance: TOFACITINIB CITRATE
     Dosage: 5 MG, EVERY 2 DAYS
     Route: 048
     Dates: start: 20181217, end: 20190102
  29. PANTOLOC [PANTOPRAZOLE] [Concomitant]
     Active Substance: PANTOPRAZOLE SODIUM
     Dosage: 40 MG, DAILY
     Route: 065
  30. NITROGLYCERIN. [Concomitant]
     Active Substance: NITROGLYCERIN
     Dosage: UNK, AS NEEDED
     Route: 060
  31. PARIET [Concomitant]
     Active Substance: RABEPRAZOLE SODIUM
     Dosage: 20 MG, TWICE DAILY
     Route: 065
  32. XELJANZ [Suspect]
     Active Substance: TOFACITINIB CITRATE
     Indication: RHEUMATOID ARTHRITIS
     Dosage: 5 MG, 2X/DAY
     Route: 048
     Dates: start: 20170717, end: 20180205
  33. XELJANZ [Suspect]
     Active Substance: TOFACITINIB CITRATE
     Dosage: 5 MG, 2X/DAY
     Route: 048
     Dates: start: 2018, end: 2018
  34. XELJANZ [Suspect]
     Active Substance: TOFACITINIB CITRATE
     Dosage: 5 MG, DAILY
     Route: 048
     Dates: start: 20181204, end: 201812
  35. PREGABALIN. [Concomitant]
     Active Substance: PREGABALIN
     Dosage: 100 MG, TWICE DAILY
     Route: 065
  36. AZITHROMYCIN ANHYDROUS. [Concomitant]
     Active Substance: AZITHROMYCIN ANHYDROUS
     Indication: INFECTION PROPHYLAXIS
     Dosage: 250 MG, 3 TIMES PER WEEK (MON, WED, FRI)
     Route: 065
     Dates: start: 201712
  37. DILAUDID [Concomitant]
     Active Substance: HYDROMORPHONE HYDROCHLORIDE
     Dosage: 4 MG, EVERY 4 HRS
     Route: 065
  38. CALCIUM [Concomitant]
     Active Substance: CALCIUM
     Dosage: 1 G, DAILY
     Route: 065
  39. LANTUS [Concomitant]
     Active Substance: INSULIN GLARGINE
     Dosage: 10 IU, DAILY
     Route: 065
  40. XELJANZ [Suspect]
     Active Substance: TOFACITINIB CITRATE
     Dosage: 5 MG, DAILY
     Route: 048
     Dates: start: 2018, end: 2018
  41. METHOTREXATE. [Concomitant]
     Active Substance: METHOTREXATE
     Indication: RHEUMATOID ARTHRITIS
     Dosage: 7.5 MG, EVERY 2 WEEKS
     Route: 065

REACTIONS (24)
  - Compression fracture [Recovering/Resolving]
  - Hyperlipidaemia [Unknown]
  - Pain [Recovering/Resolving]
  - Off label use [Unknown]
  - Bronchiectasis [Unknown]
  - Peripheral vascular disorder [Unknown]
  - Pulmonary mass [Unknown]
  - Wound infection [Unknown]
  - Stomatitis [Not Recovered/Not Resolved]
  - Cushing^s syndrome [Unknown]
  - Vomiting [Unknown]
  - Drug ineffective [Unknown]
  - Dehydration [Unknown]
  - Angiopathy [Unknown]
  - Blood test abnormal [Recovered/Resolved]
  - Hypotension [Unknown]
  - Blood potassium abnormal [Unknown]
  - Diarrhoea [Unknown]
  - Erythema [Unknown]
  - Skin ulcer [Unknown]
  - Product use issue [Unknown]
  - Pneumonia [Unknown]
  - Infection [Unknown]
  - Joint swelling [Unknown]

NARRATIVE: CASE EVENT DATE: 2018
